FAERS Safety Report 4800175-6 (Version None)
Quarter: 2005Q4

REPORT INFORMATION
  Report Type: 
  Country: None (occurrence: None)
  Receive Date: 20051017
  Receipt Date: 20051007
  Transmission Date: 20060501
  Serious: Yes (Other)
  Sender: FDA-Public Use
  Company Number: BR-JNJFOC-20051000864

PATIENT
  Age: 13 Year
  Sex: Female

DRUGS (5)
  1. HALDOL [Suspect]
     Indication: SUICIDE ATTEMPT
     Dosage: (ONE TABLET TOTAL, ONE-TIME USE FOR SUICIDE ATTEMPT)
  2. PROMETAZINA [Suspect]
     Indication: DRUG USE FOR UNKNOWN INDICATION
  3. AMPLICTIL [Suspect]
     Indication: SUICIDE ATTEMPT
     Dosage: (THREE TABLETS TOTAL, ONE-TIME USE FOR SUICIDE ATTEMPT)
  4. TEGRETOL [Concomitant]
     Indication: EPILEPSY
  5. GARDENAL [Concomitant]
     Indication: EPILEPSY

REACTIONS (2)
  - SOMNOLENCE [None]
  - SUICIDE ATTEMPT [None]
